FAERS Safety Report 7931694 (Version 7)
Quarter: 2012Q4

REPORT INFORMATION
  Report Type: 
  Country: GB (occurrence: GB)
  Receive Date: 20110505
  Receipt Date: 20120829
  Transmission Date: 20130627
  Serious: Yes (Hospitalization, Other)
  Sender: FDA-Public Use
  Company Number: PHFR2011GB02456

PATIENT
  Age: 26 Year
  Sex: Male

DRUGS (8)
  1. CLOZARIL [Suspect]
     Indication: SCHIZOPHRENIA
     Dosage: 300 mg, QD
     Route: 048
     Dates: start: 20110330
  2. CLOZARIL [Suspect]
     Dosage: 425 mg, daily dose
     Route: 048
     Dates: start: 20110404
  3. CLOZARIL [Suspect]
     Dosage: 550 mg, Daily
     Route: 048
     Dates: start: 20110404
  4. GRANULOCYTE-MACROPHAGE COLONY-STIMULATING FACTOR [Suspect]
     Dosage: 300 ug, daily dose
     Route: 058
     Dates: start: 201104
  5. ANTIPSYCHOTICS [Concomitant]
  6. DOCUSATE SODIUM [Concomitant]
     Indication: CONSTIPATION
     Dosage: 200 mg, Daily
     Route: 048
  7. PARACETAMOL [Concomitant]
     Dosage: 4 g, PRN
     Route: 048
  8. LORAZEPAM [Concomitant]
     Indication: AGITATION
     Dosage: 1 mg, Daily
     Route: 048

REACTIONS (6)
  - Neutropenia [Not Recovered/Not Resolved]
  - White blood cell count decreased [Unknown]
  - Neutrophil count increased [Unknown]
  - White blood cell count increased [Unknown]
  - Malaise [Unknown]
  - Quality of life decreased [Unknown]
